FAERS Safety Report 8825387 (Version 2)
Quarter: 2015Q3

REPORT INFORMATION
  Report Type: Report from Study
  Country: US (occurrence: US)
  Receive Date: 20121004
  Receipt Date: 20150807
  Transmission Date: 20151125
  Serious: Yes (Death)
  Sender: FDA-Public Use
  Company Number: US-ROCHE-1130815

PATIENT
  Sex: Male

DRUGS (12)
  1. RITUXAN [Suspect]
     Active Substance: RITUXIMAB
     Dosage: 8 UNITS
     Route: 042
     Dates: start: 20001221
  2. DEXAMETHASON [Concomitant]
     Active Substance: DEXAMETHASONE
  3. HYDROXYDAUNORUBICIN [Concomitant]
     Active Substance: DOXORUBICIN
  4. RITUXAN [Suspect]
     Active Substance: RITUXIMAB
     Indication: LYMPHOMA
     Route: 042
  5. RITUXAN [Suspect]
     Active Substance: RITUXIMAB
     Dosage: 8 UNITS
     Route: 042
     Dates: start: 20001228
  6. ONCOVIN [Concomitant]
     Active Substance: VINCRISTINE SULFATE
  7. RITUXAN [Suspect]
     Active Substance: RITUXIMAB
     Dosage: 8 UNITS
     Route: 042
     Dates: start: 20001214
  8. RITUXAN [Suspect]
     Active Substance: RITUXIMAB
     Dosage: 7 UNITS
     Route: 042
     Dates: start: 20010119
  9. ARA-C [Concomitant]
     Active Substance: CYTARABINE
  10. CYCLOPHOSPHAMIDE. [Concomitant]
     Active Substance: CYCLOPHOSPHAMIDE
  11. PREDNISONE. [Concomitant]
     Active Substance: PREDNISONE
  12. CISPLATIN. [Concomitant]
     Active Substance: CISPLATIN

REACTIONS (2)
  - Death [Fatal]
  - Lymphoma [Unknown]
